FAERS Safety Report 13442441 (Version 4)
Quarter: 2017Q2

REPORT INFORMATION
  Report Type: Report from Study
  Country: RS (occurrence: RS)
  Receive Date: 20170414
  Receipt Date: 20170609
  Transmission Date: 20170830
  Serious: Yes (Hospitalization, Disabling)
  Sender: FDA-Public Use
  Company Number: RS-AMGEN-SRBCT2017057703

PATIENT
  Age: 10 Year
  Sex: Female
  Weight: 36 kg

DRUGS (3)
  1. METHOTREXATE SODIUM. [Concomitant]
     Active Substance: METHOTREXATE SODIUM
     Indication: JUVENILE IDIOPATHIC ARTHRITIS
     Dosage: 7.5 MG, WEEKLY
     Route: 048
     Dates: start: 20090709, end: 20170406
  2. ETANERCEPT [Suspect]
     Active Substance: ETANERCEPT
     Indication: JUVENILE IDIOPATHIC ARTHRITIS
     Dosage: UNK, QWK
     Route: 058
     Dates: start: 20100218, end: 20170323
  3. METHOTREXATE SODIUM. [Concomitant]
     Active Substance: METHOTREXATE SODIUM
     Dosage: 12.5 MG, WEEKLY
     Route: 048
     Dates: start: 20170407

REACTIONS (1)
  - Iridocyclitis [Recovering/Resolving]

NARRATIVE: CASE EVENT DATE: 20170324
